FAERS Safety Report 5589310-2 (Version None)
Quarter: 2008Q1

REPORT INFORMATION
  Report Type: 
  Country: None (occurrence: None)
  Receive Date: 20080110
  Receipt Date: 20080110
  Transmission Date: 20080703
  Serious: Yes (Hospitalization)
  Sender: FDA-Public Use
  Company Number: None

PATIENT
  Sex: Female

DRUGS (1)
  1. REBIF [Suspect]
     Indication: MULTIPLE SCLEROSIS
     Dosage: 44MCG QOD SQ
     Route: 058
     Dates: start: 20050101

REACTIONS (4)
  - CARPAL TUNNEL SYNDROME [None]
  - FALL [None]
  - RADIUS FRACTURE [None]
  - ULNA FRACTURE [None]
